FAERS Safety Report 25689411 (Version 5)
Quarter: 2025Q4

REPORT INFORMATION
  Report Type: Spontaneous
  Country: US (occurrence: US)
  Receive Date: 20250818
  Receipt Date: 20251110
  Transmission Date: 20260117
  Serious: Yes (Other)
  Sender: MDD OPERATIONS
  Company Number: US-002147023-MDD202507-002713

PATIENT
  Age: 53 Year
  Sex: Female

DRUGS (6)
  1. ONAPGO [Suspect]
     Active Substance: APOMORPHINE HYDROCHLORIDE
     Indication: Parkinson^s disease
     Route: 058
     Dates: start: 20250714
  2. ONAPGO [Suspect]
     Active Substance: APOMORPHINE HYDROCHLORIDE
     Indication: Dyskinesia
     Dosage: 2.5MG PER HOUR CONTINUOUS INFUSION
     Route: 058
     Dates: start: 2025
  3. ONAPGO [Suspect]
     Active Substance: APOMORPHINE HYDROCHLORIDE
     Indication: On and off phenomenon
     Route: 058
     Dates: start: 2025
  4. ONAPGO [Suspect]
     Active Substance: APOMORPHINE HYDROCHLORIDE
     Dosage: STRENGTH: 98MG/20ML?DOSE: 98 MG EACH DAY
     Dates: start: 202507
  5. ONAPGO [Suspect]
     Active Substance: APOMORPHINE HYDROCHLORIDE
     Dosage: DOSE: 5.0MG PER HOUR 16 HOURS A DAY FOR 7 DAYS A WEEK
     Route: 058
     Dates: start: 20250714
  6. CARBIDOPA\LEVODOPA [Concomitant]
     Active Substance: CARBIDOPA\LEVODOPA
     Dosage: NOT PROVIDED

REACTIONS (10)
  - Tardive dyskinesia [Recovered/Resolved]
  - Peripheral swelling [Not Recovered/Not Resolved]
  - Urinary tract infection [Unknown]
  - Musculoskeletal stiffness [Unknown]
  - Malaise [Unknown]
  - Pyrexia [Unknown]
  - Fall [Unknown]
  - Infusion site irritation [Recovered/Resolved]
  - Infusion site erythema [Recovered/Resolved]
  - Drug ineffective [Unknown]

NARRATIVE: CASE EVENT DATE: 20250717
